FAERS Safety Report 8459181-5 (Version None)
Quarter: 2012Q2

REPORT INFORMATION
  Report Type: 
  Country: None (occurrence: None)
  Receive Date: 20120622
  Receipt Date: 20120614
  Transmission Date: 20120825
  Serious: Yes (Other)
  Sender: FDA-Public Use
  Company Number: CH-ASTRAZENECA-2012SE40075

PATIENT
  Age: 67 Year
  Sex: Male

DRUGS (12)
  1. ACETAMINOPHEN [Suspect]
     Route: 048
     Dates: start: 20120502, end: 20120508
  2. TORSEMIDE [Concomitant]
     Route: 048
     Dates: end: 20120501
  3. ASS CARDIO SPIRIG [Concomitant]
     Route: 048
  4. NEXIUM [Suspect]
     Route: 048
     Dates: start: 20120505, end: 20120508
  5. PRAVASTATIN [Suspect]
     Route: 048
     Dates: start: 20120504, end: 20120508
  6. CORDARONE [Suspect]
     Indication: ATRIAL FIBRILLATION
     Route: 048
     Dates: start: 20120506, end: 20120507
  7. ENALAPRIL MALEATE [Suspect]
     Route: 048
     Dates: start: 20120503, end: 20120507
  8. ALDACTONE [Suspect]
     Route: 048
     Dates: end: 20120507
  9. CORDARONE [Suspect]
     Indication: ATRIAL FLUTTER
     Route: 048
     Dates: start: 20120506, end: 20120507
  10. NOVALGIN [Concomitant]
     Route: 048
     Dates: start: 20120502, end: 20120507
  11. GLUCOPHAGE [Concomitant]
     Route: 048
  12. METOPROLOL TARTRATE [Concomitant]
     Route: 048

REACTIONS (2)
  - ATRIAL FIBRILLATION [None]
  - MIXED LIVER INJURY [None]
